FAERS Safety Report 5879673-2 (Version None)
Quarter: 2008Q3

REPORT INFORMATION
  Report Type: 
  Country: None (occurrence: None)
  Receive Date: 20080912
  Receipt Date: 20080905
  Transmission Date: 20090109
  Serious: Yes (Hospitalization)
  Sender: FDA-Public Use
  Company Number: TR-MERCK-0809USA00976

PATIENT
  Age: 26 Year
  Sex: Female

DRUGS (3)
  1. PEPCID [Suspect]
     Route: 048
  2. COLCHICINE [Suspect]
     Route: 048
  3. ACETAMINOPHEN [Suspect]
     Route: 065

REACTIONS (20)
  - ABDOMINAL TENDERNESS [None]
  - ALANINE AMINOTRANSFERASE INCREASED [None]
  - ALOPECIA TOTALIS [None]
  - ASPARTATE AMINOTRANSFERASE INCREASED [None]
  - BLOOD CREATINE PHOSPHOKINASE INCREASED [None]
  - BLOOD CREATINE PHOSPHOKINASE MB INCREASED [None]
  - BLOOD LACTATE DEHYDROGENASE INCREASED [None]
  - BLOOD SODIUM DECREASED [None]
  - BLOOD UREA INCREASED [None]
  - BONE MARROW FAILURE [None]
  - DIARRHOEA [None]
  - DRUG TOXICITY [None]
  - HAEMOGLOBIN DECREASED [None]
  - INTENTIONAL OVERDOSE [None]
  - PLATELET COUNT DECREASED [None]
  - PNEUMONIA [None]
  - PYREXIA [None]
  - SUICIDE ATTEMPT [None]
  - VULVOVAGINAL CANDIDIASIS [None]
  - WHITE BLOOD CELL COUNT INCREASED [None]
